FAERS Safety Report 7270244-2 (Version None)
Quarter: 2011Q1

REPORT INFORMATION
  Report Type: 
  Country: None (occurrence: None)
  Receive Date: 20110125
  Receipt Date: 20110125
  Transmission Date: 20110831
  Serious: No
  Sender: FDA-Public Use
  Company Number: None

PATIENT
  Sex: Male
  Weight: 89.3586 kg

DRUGS (8)
  1. VALSARTAN [Concomitant]
  2. FUROSEMIDE [Concomitant]
  3. SOTALOL HCL [Concomitant]
  4. CIPROFLOXACIN [Suspect]
     Indication: URINARY TRACT INFECTION
     Dosage: 500 MG BID PO
     Route: 048
     Dates: start: 20101231, end: 20110102
  5. CIPROFLOXACIN [Suspect]
     Indication: URINARY TRACT INFECTION
     Dosage: 500 MG BID PO
     Route: 048
     Dates: start: 20101228, end: 20101230
  6. SIMVASTATIN [Concomitant]
  7. MULTIVATIMINS [Concomitant]
  8. METOPROLOL [Concomitant]

REACTIONS (2)
  - ATRIAL FIBRILLATION [None]
  - TENDONITIS [None]
